FAERS Safety Report 7799123-9 (Version None)
Quarter: 2011Q4

REPORT INFORMATION
  Report Type: 
  Country: None (occurrence: None)
  Receive Date: 20111006
  Receipt Date: 20111004
  Transmission Date: 20120403
  Serious: Yes (Disabling, Other)
  Sender: FDA-Public Use
  Company Number: US-PFIZER INC-2011237818

PATIENT
  Sex: Male
  Weight: 113.4 kg

DRUGS (4)
  1. INSULIN [Concomitant]
     Indication: DIABETES MELLITUS
     Dosage: UNK
  2. CHANTIX [Suspect]
     Indication: SMOKING CESSATION THERAPY
     Dosage: 0.5 MG, DAILY
     Route: 048
     Dates: start: 20090101
  3. CHANTIX [Suspect]
     Dosage: 0.5 MG, DAILY
     Route: 048
     Dates: start: 20100929, end: 20100101
  4. CHANTIX [Suspect]
     Dosage: 1 MG, UNK
     Dates: start: 20100101

REACTIONS (5)
  - DYSPNOEA [None]
  - PANIC ATTACK [None]
  - SURGERY [None]
  - BALANCE DISORDER [None]
  - DRUG INEFFECTIVE [None]
